FAERS Safety Report 15114858 (Version 1)
Quarter: 2018Q3

REPORT INFORMATION
  Report Type: Spontaneous
  Country: IT (occurrence: IT)
  Receive Date: 20180706
  Receipt Date: 20180706
  Transmission Date: 20181010
  Serious: Yes (Death, Other)
  Sender: FDA-Public Use
  Company Number: IT-CELGENEUS-ITA-20180610707

PATIENT
  Age: 74 Year
  Sex: Female

DRUGS (2)
  1. REVLIMID [Suspect]
     Active Substance: LENALIDOMIDE
     Indication: PLASMA CELL MYELOMA
     Route: 048
  2. IXAZOMIB [Concomitant]
     Active Substance: IXAZOMIB
     Indication: PLASMA CELL MYELOMA
     Route: 065

REACTIONS (12)
  - Thrombotic microangiopathy [Unknown]
  - Oliguria [Unknown]
  - Pyrexia [Unknown]
  - Syncope [Unknown]
  - Vomiting [Unknown]
  - Blood creatinine increased [Unknown]
  - Septic shock [Fatal]
  - Haemoglobin decreased [Unknown]
  - Diarrhoea [Unknown]
  - Acute kidney injury [Unknown]
  - Thrombocytopenia [Unknown]
  - Renal tubular necrosis [Unknown]
